FAERS Safety Report 16665780 (Version 3)
Quarter: 2019Q4

REPORT INFORMATION
  Report Type: Spontaneous
  Country: US (occurrence: US)
  Receive Date: 20190804
  Receipt Date: 20191009
  Transmission Date: 20200122
  Serious: Yes (Other)
  Sender: FDA-Public Use
  Company Number: US-BAYER-2019-139279

PATIENT
  Age: 16 Year
  Sex: Male

DRUGS (2)
  1. KOGENATE FS [Suspect]
     Active Substance: ANTIHEMOPHILIC FACTOR, HUMAN RECOMBINANT
     Dosage: UNK
     Route: 042
     Dates: start: 20021226
  2. KOGENATE FS [Suspect]
     Active Substance: ANTIHEMOPHILIC FACTOR, HUMAN RECOMBINANT
     Dosage: 2600 U +/- 10%, QOD, 3-4 TIMES A WEEK
     Route: 042
     Dates: start: 201903

REACTIONS (8)
  - Haemorrhage [None]
  - Recalled product [Not Recovered/Not Resolved]
  - Chest pain [None]
  - Recalled product administered [Not Recovered/Not Resolved]
  - Dizziness [None]
  - Vasodilatation [None]
  - Hypersomnia [None]
  - Somnolence [None]

NARRATIVE: CASE EVENT DATE: 201903
